FAERS Safety Report 8550031-5 (Version None)
Quarter: 2012Q3

REPORT INFORMATION
  Report Type: 
  Country: None (occurrence: None)
  Receive Date: 20120730
  Receipt Date: 20120720
  Transmission Date: 20120928
  Serious: Yes (Other)
  Sender: FDA-Public Use
  Company Number: US-ASTRAZENECA-2012SE51186

PATIENT
  Sex: Male

DRUGS (4)
  1. MANY MEDICATIONS [Concomitant]
  2. SEROQUEL XR [Suspect]
     Indication: BIPOLAR DISORDER
     Route: 048
     Dates: start: 20020101
  3. SEROQUEL XR [Suspect]
     Route: 048
  4. SEROQUEL XR [Suspect]
     Route: 048

REACTIONS (6)
  - BLOOD GLUCOSE INCREASED [None]
  - RESTLESS LEGS SYNDROME [None]
  - DRUG DOSE OMISSION [None]
  - THERAPEUTIC RESPONSE UNEXPECTED [None]
  - TARDIVE DYSKINESIA [None]
  - INSOMNIA [None]
